FAERS Safety Report 19158507 (Version 1)
Quarter: 2021Q2

REPORT INFORMATION
  Report Type: Report from Study
  Country: US (occurrence: US)
  Receive Date: 20210420
  Receipt Date: 20210420
  Transmission Date: 20210717
  Serious: Yes (Hospitalization)
  Sender: FDA-Public Use
  Company Number: US-BAYER-2021-103661

PATIENT
  Age: 43 Year
  Sex: Female
  Weight: 69.84 kg

DRUGS (4)
  1. AMBRISENTAN [Concomitant]
     Active Substance: AMBRISENTAN
     Dosage: UNK
  2. EPOPROSTENOL. [Suspect]
     Active Substance: EPOPROSTENOL
     Indication: PULMONARY ARTERIAL HYPERTENSION
     Dosage: 56 NG/KG ONE TIME EVERY MINUTE
     Route: 042
     Dates: end: 202103
  3. VELETRI [Concomitant]
     Active Substance: EPOPROSTENOL
     Dosage: UNK
  4. ADEMPAS [Suspect]
     Active Substance: RIOCIGUAT
     Indication: PULMONARY ARTERIAL HYPERTENSION
     Dosage: 0.5 MG, TID
     Route: 048
     Dates: end: 202103

REACTIONS (6)
  - Weight increased [None]
  - Ascites [None]
  - Fluid retention [None]
  - Dyspnoea [None]
  - Hypotension [None]
  - Gastric disorder [None]

NARRATIVE: CASE EVENT DATE: 20210309
